FAERS Safety Report 10191787 (Version 1)
Quarter: 2014Q2

REPORT INFORMATION
  Report Type: Spontaneous
  Country: US (occurrence: US)
  Receive Date: 20140523
  Receipt Date: 20140523
  Transmission Date: 20141212
  Serious: No
  Sender: FDA-Public Use
  Company Number: US-BAYER-2014-076636

PATIENT
  Age: 91 Year
  Sex: Male
  Weight: 84 kg

DRUGS (5)
  1. ALEVE CAPLET [Suspect]
     Indication: MYALGIA
     Dosage: 1-2 DF, PRN
     Route: 048
  2. VITAMIN C [Concomitant]
  3. ALPHA LIPOIC ACID [Concomitant]
  4. VITAMIN D [Concomitant]
  5. VITAMIN E [Concomitant]

REACTIONS (2)
  - Rash [Not Recovered/Not Resolved]
  - Rash pruritic [Not Recovered/Not Resolved]
